FAERS Safety Report 8289492-8 (Version None)
Quarter: 2012Q2

REPORT INFORMATION
  Report Type: 
  Country: None (occurrence: None)
  Receive Date: 20120417
  Receipt Date: 20120409
  Transmission Date: 20120825
  Serious: Yes (Hospitalization, Other)
  Sender: FDA-Public Use
  Company Number: JP-ASTELLAS-2012US001834

PATIENT
  Sex: Female
  Weight: 40 kg

DRUGS (15)
  1. OMEPRAZOLE [Concomitant]
     Indication: GASTRITIS EROSIVE
     Dosage: 20 MG, UID/QD
     Route: 048
  2. CLOBETASONE BUTYRATE [Concomitant]
     Indication: RASH
     Dosage: UNK
     Route: 061
     Dates: start: 20111130
  3. MYSER [Concomitant]
     Indication: RASH
     Dosage: UNK
     Route: 061
     Dates: start: 20111229
  4. KARY UNI [Concomitant]
     Indication: CATARACT
     Dosage: UNK
     Route: 047
     Dates: start: 20111203
  5. IDOMETHINE [Concomitant]
     Indication: OSTEOARTHRITIS
     Dosage: UNK
     Route: 061
  6. ENALAPRIL MALEATE [Concomitant]
     Indication: HYPERTENSION
     Dosage: 2.5 MG, UID/QD
     Route: 048
  7. NAPROXEN [Concomitant]
     Indication: TUMOUR ASSOCIATED FEVER
     Dosage: 600 MG, UID/QD
     Route: 048
     Dates: end: 20120214
  8. POLARAMINE [Concomitant]
     Indication: PRURITUS
     Dosage: 6 MG, UID/QD
     Route: 048
     Dates: start: 20111209
  9. CEROCRAL [Concomitant]
     Indication: PRODUCT USED FOR UNKNOWN INDICATION
     Dosage: 60 MG, UID/QD
     Route: 048
     Dates: start: 20111222
  10. MUCOSTA [Concomitant]
     Indication: GASTROINTESTINAL HAEMORRHAGE
     Dosage: 300 MG, UID/QD
     Route: 048
     Dates: start: 20111124
  11. LOPERAMIDE HCL [Concomitant]
     Indication: DIARRHOEA
     Dosage: 1 MG, UNKNOWN/D
     Route: 048
     Dates: start: 20120120
  12. DIART [Concomitant]
     Indication: HYPERTENSION
     Dosage: 30 MG, UID/QD
     Route: 048
  13. LYRICA [Concomitant]
     Indication: OSTEOARTHRITIS
     Dosage: 150 MG, UID/QD
     Route: 048
  14. ERLOTINIB HYDROCHLORIDE [Suspect]
     Indication: NON-SMALL CELL LUNG CANCER
     Dosage: 150 MG, UID/QD
     Route: 048
     Dates: start: 20111118, end: 20120210
  15. MIYA BM [Concomitant]
     Indication: DIARRHOEA
     Dosage: UNK
     Route: 048
     Dates: start: 20111125

REACTIONS (5)
  - ANAEMIA [None]
  - GASTRITIS EROSIVE [None]
  - GENERAL PHYSICAL HEALTH DETERIORATION [None]
  - DECREASED APPETITE [None]
  - COR PULMONALE [None]
